FAERS Safety Report 8135897-5 (Version None)
Quarter: 2012Q1

REPORT INFORMATION
  Report Type: 
  Country: None (occurrence: None)
  Receive Date: 20120103
  Receipt Date: 20111122
  Transmission Date: 20120608
  Serious: No
  Sender: FDA-Public Use
  Company Number: AE-2011-003125

PATIENT
  Age: 47 Year
  Sex: Male
  Weight: 107.0489 kg

DRUGS (5)
  1. PEGASYS [Concomitant]
  2. RIBAPAK (RIBAVIRIN) [Concomitant]
  3. LAMOTRIGINE [Concomitant]
  4. METFORMIN HCL [Concomitant]
  5. INCIVEK [Suspect]
     Dosage: 2250 MG (750 MG,  1 IN 8 HR), ORAL
     Route: 048
     Dates: start: 20111006

REACTIONS (12)
  - CONSTIPATION [None]
  - PRURITUS [None]
  - EPISTAXIS [None]
  - MOOD SWINGS [None]
  - FEELING ABNORMAL [None]
  - NAUSEA [None]
  - ANGER [None]
  - VOMITING [None]
  - HEADACHE [None]
  - SLEEP DISORDER [None]
  - CHEILITIS [None]
  - DEHYDRATION [None]
